FAERS Safety Report 8434562-4 (Version None)
Quarter: 2012Q2

REPORT INFORMATION
  Report Type: 
  Country: None (occurrence: None)
  Receive Date: 20120614
  Receipt Date: 20120607
  Transmission Date: 20120825
  Serious: No
  Sender: FDA-Public Use
  Company Number: US-BIOGENIDEC-2012BI020352

PATIENT
  Sex: Female

DRUGS (5)
  1. AVONEX [Concomitant]
     Route: 030
     Dates: start: 20070911
  2. AVONEX [Concomitant]
     Route: 030
  3. TYSABRI [Suspect]
     Indication: MULTIPLE SCLEROSIS
     Route: 042
     Dates: start: 20100423
  4. AVONEX [Concomitant]
     Indication: MULTIPLE SCLEROSIS
     Route: 030
  5. AVONEX [Concomitant]
     Route: 030
     Dates: start: 20000815

REACTIONS (2)
  - MULTIPLE SCLEROSIS RELAPSE [None]
  - INFECTION [None]
